FAERS Safety Report 4970151-1 (Version None)
Quarter: 2006Q2

REPORT INFORMATION
  Report Type: 
  Country: None (occurrence: None)
  Receive Date: 20060406
  Receipt Date: 20060322
  Transmission Date: 20061013
  Serious: Yes (Hospitalization)
  Sender: FDA-Public Use
  Company Number: ZYD-AE-06-023

PATIENT
  Sex: Male

DRUGS (2)
  1. RIBAVIRIN [Suspect]
     Indication: HEPATITIS C
     Dosage: 2 CPASULES - BID - ORAL
     Route: 048
     Dates: start: 20050901, end: 20060316
  2. PEGASYS [Concomitant]

REACTIONS (3)
  - COMA [None]
  - DIZZINESS [None]
  - FATIGUE [None]
